FAERS Safety Report 14230319 (Version 6)
Quarter: 2018Q1

REPORT INFORMATION
  Report Type: Spontaneous
  Country: US (occurrence: US)
  Receive Date: 20171128
  Receipt Date: 20180305
  Transmission Date: 20180508
  Serious: Yes (Hospitalization, Other)
  Sender: FDA-Public Use
  Company Number: US-ASTELLAS-2017US044391

PATIENT
  Age: 78 Year
  Sex: Male

DRUGS (4)
  1. XTANDI [Suspect]
     Active Substance: ENZALUTAMIDE
     Indication: PROSTATE CANCER
     Route: 048
     Dates: start: 20171007
  2. XTANDI [Suspect]
     Active Substance: ENZALUTAMIDE
     Route: 048
  3. XTANDI [Suspect]
     Active Substance: ENZALUTAMIDE
     Route: 048
     Dates: start: 201711, end: 20171124
  4. XTANDI [Suspect]
     Active Substance: ENZALUTAMIDE
     Route: 048
     Dates: start: 20180111, end: 20180124

REACTIONS (21)
  - Drug intolerance [Recovered/Resolved]
  - Balance disorder [Unknown]
  - Treatment noncompliance [Unknown]
  - Abdominal pain lower [Recovered/Resolved]
  - Retching [Unknown]
  - Emotional disorder [Unknown]
  - Abdominal pain [Unknown]
  - Back pain [Unknown]
  - Mental disorder [Recovered/Resolved]
  - Intentional dose omission [Unknown]
  - Muscular weakness [Recovered/Resolved]
  - Gait disturbance [Unknown]
  - Mobility decreased [Unknown]
  - Vomiting [Recovered/Resolved]
  - Depression [Recovered/Resolved]
  - Fatigue [Unknown]
  - Musculoskeletal pain [Unknown]
  - Spinal pain [Unknown]
  - Feeling abnormal [Unknown]
  - Dysstasia [Unknown]
  - Muscular weakness [Unknown]

NARRATIVE: CASE EVENT DATE: 2017
